FAERS Safety Report 8899490 (Version 1)
Quarter: 2012Q4

REPORT INFORMATION
  Report Type: 
  Country: US (occurrence: US)
  Receive Date: 20121108
  Receipt Date: 20121108
  Transmission Date: 20130627
  Serious: No
  Sender: FDA-Public Use
  Company Number: US-AMGEN-USASP2012032284

PATIENT
  Age: 60 Year
  Sex: Female

DRUGS (8)
  1. ENBREL [Suspect]
     Indication: RHEUMATOID ARTHRITIS
     Dosage: 50 mg, qwk
     Dates: end: 201110
  2. ENBREL [Suspect]
     Dosage: 50 mg, qwk
     Dates: start: 201201
  3. FLUCONAZOLE [Concomitant]
  4. LISINOPRIL [Concomitant]
  5. PREDNISONE [Concomitant]
  6. PLAQUENIL                          /00072603/ [Concomitant]
  7. METHOTREXATE [Concomitant]
  8. FOLIC ACID [Concomitant]

REACTIONS (1)
  - Lung infection [Recovered/Resolved]
